FAERS Safety Report 6159914-7 (Version None)
Quarter: 2009Q2

REPORT INFORMATION
  Report Type: 
  Country: None (occurrence: None)
  Receive Date: 20090415
  Receipt Date: 20090415
  Transmission Date: 20091009
  Serious: Yes (Hospitalization)
  Sender: FDA-Public Use
  Company Number: TPH-00171

PATIENT
  Age: 19 Year
  Sex: Female

DRUGS (3)
  1. TRIGYNON [Suspect]
     Indication: DRUG USE FOR UNKNOWN INDICATION
     Dosage: 1 DF ORAL
     Route: 048
     Dates: start: 20060508, end: 20090310
  2. NORDETTE-28 [Concomitant]
  3. LOVETTE [Concomitant]

REACTIONS (2)
  - ARRHYTHMIA [None]
  - FATIGUE [None]
